FAERS Safety Report 4292488-4 (Version None)
Quarter: 2004Q1

REPORT INFORMATION
  Report Type: 
  Country: None (occurrence: None)
  Receive Date: 20040211
  Receipt Date: 20040204
  Transmission Date: 20041129
  Serious: Yes (Other)
  Sender: FDA-Public Use
  Company Number: PHBS2004US01761

PATIENT
  Age: 70 Year
  Sex: Male

DRUGS (1)
  1. PAMIDRONATE DISODIUM [Suspect]
     Indication: MULTIPLE MYELOMA
     Dosage: 90 MG, TIW
     Dates: start: 19970901, end: 20000501

REACTIONS (5)
  - BLOOD CREATININE INCREASED [None]
  - GLOMERULONEPHRITIS FOCAL [None]
  - PROTEINURIA [None]
  - RENAL INTERSTITIAL FIBROSIS [None]
  - RENAL TUBULAR ATROPHY [None]
